FAERS Safety Report 8103091-X (Version None)
Quarter: 2012Q1

REPORT INFORMATION
  Report Type: 
  Country: None (occurrence: None)
  Receive Date: 20120201
  Receipt Date: 20120125
  Transmission Date: 20120608
  Serious: Yes (Other)
  Sender: FDA-Public Use
  Company Number: TH-JNJFOC-20120112227

PATIENT

DRUGS (3)
  1. INVEGA [Suspect]
     Route: 048
     Dates: start: 20120125
  2. INVEGA [Suspect]
     Route: 048
  3. INVEGA [Suspect]
     Indication: SCHIZOPHRENIA
     Route: 048

REACTIONS (3)
  - DRUG INEFFECTIVE [None]
  - COGNITIVE DISORDER [None]
  - DEPRESSION [None]
